FAERS Safety Report 20658586 (Version 1)
Quarter: 2022Q1

REPORT INFORMATION
  Report Type: Spontaneous
  Country: US (occurrence: None)
  Receive Date: 20220330
  Receipt Date: 20220330
  Transmission Date: 20220423
  Serious: Yes (Hospitalization)
  Sender: FDA-Public Use
  Company Number: None

PATIENT
  Age: 34 Year
  Sex: Female

DRUGS (1)
  1. CAPECITABINE [Suspect]
     Active Substance: CAPECITABINE
     Dosage: 1500MG BID ORAL
     Route: 048
     Dates: start: 202203

REACTIONS (3)
  - Dizziness [None]
  - Fatigue [None]
  - Intestinal obstruction [None]

NARRATIVE: CASE EVENT DATE: 20220330
